FAERS Safety Report 16252295 (Version 2)
Quarter: 2020Q2

REPORT INFORMATION
  Report Type: Spontaneous
  Country: US (occurrence: US)
  Receive Date: 20190429
  Receipt Date: 20200623
  Transmission Date: 20200713
  Serious: Yes (Hospitalization)
  Sender: FDA-Public Use
  Company Number: US-JNJFOC-20190435103

PATIENT
  Age: 59 Year
  Sex: Male

DRUGS (1)
  1. INVOKANA [Suspect]
     Active Substance: CANAGLIFLOZIN
     Indication: TYPE 2 DIABETES MELLITUS
     Route: 048

REACTIONS (5)
  - Multiple injuries [Unknown]
  - Toe amputation [Unknown]
  - Osteomyelitis [Unknown]
  - Diabetic ulcer [Unknown]
  - Cellulitis [Recovering/Resolving]

NARRATIVE: CASE EVENT DATE: 201610
